FAERS Safety Report 5049914-2 (Version None)
Quarter: 2006Q2

REPORT INFORMATION
  Report Type: 
  Country: None (occurrence: None)
  Receive Date: 20060614
  Receipt Date: 20060324
  Transmission Date: 20061013
  Serious: Yes (Other)
  Sender: FDA-Public Use
  Company Number: 441821

PATIENT
  Sex: Female

DRUGS (1)
  1. BONIVA [Suspect]
     Indication: DRUG USE FOR UNKNOWN INDICATION
     Dosage: ORAL
     Route: 048
     Dates: start: 20060322

REACTIONS (3)
  - BACK PAIN [None]
  - MUSCULOSKELETAL CHEST PAIN [None]
  - MUSCULOSKELETAL STIFFNESS [None]
